FAERS Safety Report 5507943-6 (Version None)
Quarter: 2007Q4

REPORT INFORMATION
  Report Type: 
  Country: None (occurrence: None)
  Receive Date: 20071106
  Receipt Date: 20071026
  Transmission Date: 20080405
  Serious: Yes (Hospitalization)
  Sender: FDA-Public Use
  Company Number: FR-AMGEN-US250210

PATIENT
  Age: 80 Year
  Sex: Female

DRUGS (13)
  1. ENBREL [Suspect]
     Indication: RHEUMATOID ARTHRITIS
     Dosage: UNKNOWN DOSE
     Route: 058
     Dates: start: 20070101, end: 20070901
  2. NOVATREX [Suspect]
     Indication: RHEUMATOID ARTHRITIS
     Dosage: 2.5 MG TOTAL WEEKLY
     Route: 048
  3. PLAVIX [Concomitant]
     Dosage: UNKNOWN DOSE
     Dates: end: 20070901
  4. ATACAND [Concomitant]
     Dosage: UNKNOWN DOSE
  5. HYPERIUM [Concomitant]
     Dosage: UNKNOWN DOSE
  6. INDAPAMIDE [Concomitant]
     Dosage: UNKNOWN DOSE
  7. ELISOR [Concomitant]
     Dosage: UNKNOWN DOSE
     Dates: start: 20070901
  8. CLONAZEPAM [Concomitant]
     Dosage: UNKNOWN DOSE
  9. DEPAMIDE [Concomitant]
     Dosage: UNKNOWN DOSE
  10. PAROXETINE HCL [Concomitant]
     Dosage: UNKNOWN DOSE
  11. LEVOTHYROXINE SODIUM [Concomitant]
     Dosage: UNKNOWN DOSE
  12. CORTANCYL [Concomitant]
     Dosage: UNKNOWN DOSE
  13. NEURONTIN [Concomitant]
     Dosage: UNKNOWN DOSE

REACTIONS (4)
  - COLITIS ISCHAEMIC [None]
  - HEMIPLEGIA [None]
  - MALAISE [None]
  - TRANSIENT ISCHAEMIC ATTACK [None]
